FAERS Safety Report 6661487-7 (Version None)
Quarter: 2010Q1

REPORT INFORMATION
  Report Type: 
  Country: None (occurrence: None)
  Receive Date: 20100331
  Receipt Date: 20100323
  Transmission Date: 20100710
  Serious: Yes (Death, Hospitalization)
  Sender: FDA-Public Use
  Company Number: FR-PFIZER INC-2010036898

PATIENT
  Age: 52 Year
  Sex: Male

DRUGS (8)
  1. TRIFLUCAN [Suspect]
     Dosage: 1 DF, 1X/DAY
     Route: 048
     Dates: start: 20090930, end: 20091021
  2. NEXIUM [Suspect]
     Indication: GASTROOESOPHAGEAL REFLUX DISEASE
     Dosage: 40 MG, UNK
     Route: 048
     Dates: start: 20090929, end: 20091019
  3. LOVENOX [Suspect]
     Dosage: UNK
     Route: 058
     Dates: start: 20090929, end: 20091019
  4. PARACETAMOL (PERFALGAN) [Suspect]
     Indication: PROCEDURAL PAIN
     Dosage: UNK
     Route: 048
     Dates: start: 20091003, end: 20091014
  5. ERYTHROMYCIN [Concomitant]
     Dosage: 250 MG, 3X/DAY
     Route: 048
     Dates: start: 20090930, end: 20091016
  6. LEVOTHYROX [Concomitant]
     Indication: HYPOTHYROIDISM
     Dosage: 150 UG, 1X/DAY
     Route: 048
     Dates: start: 20090930
  7. CREON [Concomitant]
     Indication: PANCREATIC INSUFFICIENCY
     Dosage: UNK
     Route: 048
     Dates: start: 20090930
  8. IXEL [Concomitant]
     Indication: DEPRESSION
     Dosage: 50 MG, 3X/DAY
     Route: 048
     Dates: start: 20090930, end: 20091021

REACTIONS (1)
  - THROMBOCYTOPENIA [None]
